FAERS Safety Report 10950232 (Version 1)
Quarter: 2015Q1

REPORT INFORMATION
  Report Type: Spontaneous
  Country: US (occurrence: None)
  Receive Date: 20150323
  Receipt Date: 20150323
  Transmission Date: 20150721
  Serious: Yes (Disabling, Other)
  Sender: FDA-Public Use
  Company Number: None

PATIENT
  Age: 61 Year
  Sex: Male
  Weight: 82 kg

DRUGS (1)
  1. MIRALAX [Suspect]
     Active Substance: POLYETHYLENE GLYCOL 3350
     Indication: CONSTIPATION
     Dosage: DATES OF USE:  ONE YEAR, ONE DAILY, ONCE DAILY

REACTIONS (3)
  - Myopathy [None]
  - Malaise [None]
  - Neuromyopathy [None]

NARRATIVE: CASE EVENT DATE: 20150322
